FAERS Safety Report 7788760-3 (Version None)
Quarter: 2011Q3

REPORT INFORMATION
  Report Type: 
  Country: None (occurrence: None)
  Receive Date: 20110930
  Receipt Date: 20110927
  Transmission Date: 20111222
  Serious: Yes (Hospitalization)
  Sender: FDA-Public Use
  Company Number: CH-PFIZER INC-2011229566

PATIENT
  Age: 34 Year
  Sex: Female

DRUGS (3)
  1. EFFEXOR [Suspect]
     Dosage: 75 MG, 1X/DAY
     Route: 048
  2. EXELON [Suspect]
     Dosage: 18 MG, 1X/DAY
     Route: 003
  3. COPAXONE [Suspect]
     Indication: MULTIPLE SCLEROSIS
     Dosage: 20 MG, 1X/DAY
     Route: 058

REACTIONS (3)
  - ATRIOVENTRICULAR BLOCK SECOND DEGREE [None]
  - ELECTROCARDIOGRAM ABNORMAL [None]
  - VENTRICULAR EXTRASYSTOLES [None]
